FAERS Safety Report 14481367 (Version 1)
Quarter: 2018Q1

REPORT INFORMATION
  Report Type: Spontaneous
  Country: DE (occurrence: DE)
  Receive Date: 20180202
  Receipt Date: 20180202
  Transmission Date: 20180509
  Serious: Yes (Other)
  Sender: FDA-Public Use
  Company Number: DE-SA-2017SA129137

PATIENT
  Age: 31 Year
  Sex: Female
  Weight: 75 kg

DRUGS (9)
  1. SERTRALINE [Concomitant]
     Active Substance: SERTRALINE HYDROCHLORIDE
     Indication: DEPRESSION
     Dosage: 0-0-1
     Route: 048
  2. L-THYROXINE [Concomitant]
     Active Substance: LEVOTHYROXINE
     Dosage: 0-0-1
     Route: 065
  3. AUBAGIO [Suspect]
     Active Substance: TERIFLUNOMIDE
     Indication: MULTIPLE SCLEROSIS
     Route: 048
  4. AUBAGIO [Suspect]
     Active Substance: TERIFLUNOMIDE
     Indication: MULTIPLE SCLEROSIS
     Route: 048
     Dates: start: 20131220, end: 201412
  5. TECFIDERA [Concomitant]
     Active Substance: DIMETHYL FUMARATE
     Route: 065
  6. GABAPENTIN. [Concomitant]
     Active Substance: GABAPENTIN
     Indication: NEURALGIA
     Dosage: FREQUENCY: 0-0-2
     Route: 048
     Dates: start: 20111125
  7. SPASMEX (TROSPIUM CHLORIDE) [Concomitant]
     Active Substance: TROSPIUM CHLORIDE
     Indication: NEUROGENIC BLADDER
     Dosage: DOSAGE: 30
     Route: 065
  8. PANTOZOL [Concomitant]
     Active Substance: PANTOPRAZOLE SODIUM
     Dosage: 1-0-0
     Route: 065
  9. FERRO-SANOL [Concomitant]
     Route: 065

REACTIONS (8)
  - Neuropathy peripheral [Unknown]
  - Bladder dysfunction [Unknown]
  - Chronic fatigue syndrome [Unknown]
  - Quadriparesis [Unknown]
  - Raynaud^s phenomenon [Not Recovered/Not Resolved]
  - Ataxia [Unknown]
  - Multiple sclerosis relapse [Unknown]
  - Anal incontinence [Unknown]

NARRATIVE: CASE EVENT DATE: 2014
